FAERS Safety Report 9143938 (Version 1)
Quarter: 2013Q1

REPORT INFORMATION
  Report Type: Spontaneous
  Country: US (occurrence: US)
  Receive Date: 20130306
  Receipt Date: 20130306
  Transmission Date: 20140127
  Serious: Yes (Other)
  Sender: FDA-Public Use
  Company Number: US-FRI-1000043014

PATIENT
  Age: 52 Year
  Sex: Female

DRUGS (12)
  1. VIIBRYD [Suspect]
     Indication: DEPRESSION
     Dosage: 10 MG
     Route: 048
     Dates: start: 201301, end: 2013
  2. VIIBRYD [Suspect]
     Dosage: 20 MG
     Route: 048
     Dates: start: 2013, end: 201302
  3. VIIBRYD [Suspect]
     Indication: DEPRESSION
     Dosage: 40 MG QD
     Route: 048
     Dates: start: 201302, end: 20130226
  4. VIIBRYD [Suspect]
     Dosage: 40 MG
     Route: 048
     Dates: start: 20130302
  5. HYDROXYZINE [Concomitant]
  6. LORAZEPAM [Concomitant]
  7. BIOTIN [Concomitant]
     Indication: ALOPECIA
     Dates: start: 201211
  8. IRON [Concomitant]
     Indication: ANAEMIA
  9. CARBAMAZEPINE [Concomitant]
     Indication: CONVULSION
  10. VITAMIN-C [Concomitant]
  11. PAIN MEDICATION NOS [Concomitant]
     Indication: SWELLING
     Dates: start: 20130213
  12. ALEVE [Concomitant]

REACTIONS (5)
  - Vaginal haemorrhage [Recovering/Resolving]
  - Confusional state [Not Recovered/Not Resolved]
  - Diarrhoea [Not Recovered/Not Resolved]
  - Contusion [Not Recovered/Not Resolved]
  - Decreased appetite [Not Recovered/Not Resolved]
